FAERS Safety Report 6265762-X (Version None)
Quarter: 2009Q3

REPORT INFORMATION
  Report Type: 
  Country: None (occurrence: None)
  Receive Date: 20090709
  Receipt Date: 20090709
  Transmission Date: 20100115
  Serious: Yes (Other)
  Sender: FDA-Public Use
  Company Number: None

PATIENT
  Sex: Female
  Weight: 79.3795 kg

DRUGS (1)
  1. ZICAM COLD REMEDY GEL SWABS ZICAM LLC PHOENIX ARIZONIA [Suspect]
     Indication: NASOPHARYNGITIS
     Dosage: ONE SWAB EVERY FOUR HOURS
     Dates: start: 20071001, end: 20081101

REACTIONS (1)
  - ANOSMIA [None]
